FAERS Safety Report 8113087-X (Version None)
Quarter: 2012Q1

REPORT INFORMATION
  Report Type: 
  Country: None (occurrence: None)
  Receive Date: 20120203
  Receipt Date: 20120131
  Transmission Date: 20120608
  Serious: Yes (Other)
  Sender: FDA-Public Use
  Company Number: NL-GLAXOSMITHKLINE-B0779067A

PATIENT
  Sex: Male
  Weight: 80 kg

DRUGS (1)
  1. PAROXETINE [Suspect]
     Indication: PRODUCT USED FOR UNKNOWN INDICATION
     Dosage: 20MG PER DAY
     Route: 048
     Dates: start: 20070219

REACTIONS (2)
  - FOOT FRACTURE [None]
  - PATHOLOGICAL FRACTURE [None]
